FAERS Safety Report 9659956 (Version 5)
Quarter: 2013Q4

REPORT INFORMATION
  Report Type: Spontaneous
  Country: US (occurrence: US)
  Receive Date: 20131031
  Receipt Date: 20131217
  Transmission Date: 20140711
  Serious: Yes (Hospitalization)
  Sender: FDA-Public Use
  Company Number: US-PFIZER INC-2013310277

PATIENT
  Age: 58 Year
  Sex: Male
  Weight: 90.7 kg

DRUGS (5)
  1. NORVASC [Suspect]
     Indication: HYPERTENSION
     Dosage: 5MG OR 10MG DAILY
     Dates: start: 2006, end: 200602
  2. NORVASC [Suspect]
     Dosage: UNK
     Route: 065
     Dates: start: 2006, end: 2006
  3. LISINOPRIL [Suspect]
     Indication: HYPERTENSION
     Dosage: UNK
  4. ALTACE [Suspect]
     Indication: HYPERTENSION
     Dosage: 5 MG, DAILY
     Dates: start: 2006
  5. CARDURA [Suspect]
     Indication: HYPERTENSION
     Dosage: UNK
     Route: 065

REACTIONS (7)
  - Malaise [Unknown]
  - Constipation [Unknown]
  - Intentional drug misuse [Unknown]
  - Drug intolerance [Unknown]
  - Gastrointestinal disorder [Unknown]
  - Malaise [Unknown]
  - Drug ineffective [Unknown]
